FAERS Safety Report 15302780 (Version 1)
Quarter: 2018Q3

REPORT INFORMATION
  Report Type: Spontaneous
  Country: US (occurrence: US)
  Receive Date: 20180821
  Receipt Date: 20180821
  Transmission Date: 20181010
  Serious: Yes (Other)
  Sender: FDA-Public Use
  Company Number: US-MALLINCKRODT-T201803520

PATIENT
  Sex: Male

DRUGS (1)
  1. METHADONE [Suspect]
     Active Substance: METHADONE HYDROCHLORIDE
     Indication: PAIN
     Dosage: 23 TABLETS OF 10 MG, TWICE DAILY (EQUAL TO 460 MG)
     Route: 065

REACTIONS (2)
  - Prescribed overdose [Unknown]
  - Cognitive disorder [Unknown]
